FAERS Safety Report 4957407-3 (Version None)
Quarter: 2006Q1

REPORT INFORMATION
  Report Type: 
  Country: None (occurrence: None)
  Receive Date: 20060327
  Receipt Date: 20060315
  Transmission Date: 20060701
  Serious: Yes (Hospitalization, Other)
  Sender: FDA-Public Use
  Company Number: US-2005-009439

PATIENT
  Age: 43 Year
  Sex: Female

DRUGS (1)
  1. BETASERON [Suspect]
     Indication: RELAPSING-REMITTING MULTIPLE SCLEROSIS
     Dosage: 8 MIU, EVERY 2D HS, SUBCUTANEOUS
     Route: 058
     Dates: start: 20050131, end: 20060215

REACTIONS (9)
  - DEPRESSION [None]
  - FALL [None]
  - FATIGUE [None]
  - HOT FLUSH [None]
  - INJECTION SITE REACTION [None]
  - JOINT SPRAIN [None]
  - SUICIDAL IDEATION [None]
  - URINARY RETENTION [None]
  - VENTRICULAR EXTRASYSTOLES [None]
